FAERS Safety Report 8389939-2 (Version None)
Quarter: 2012Q2

REPORT INFORMATION
  Report Type: 
  Country: None (occurrence: None)
  Receive Date: 20120516
  Receipt Date: 20120505
  Transmission Date: 20120825
  Serious: Yes (Hospitalization, Disabling, Other)
  Sender: FDA-Public Use
  Company Number: ACO_30304_2012

PATIENT
  Age: 55 Year
  Sex: Male

DRUGS (3)
  1. ALL OTHER THERAPEUTIC PRODUCTS [Concomitant]
  2. AMPYRA [Suspect]
     Indication: GAIT DISTURBANCE
     Dosage: 10 MG, BID
     Dates: start: 20110301, end: 20120401
  3. KEPPRA (LEVERTIRACETAM) [Concomitant]

REACTIONS (6)
  - PRESYNCOPE [None]
  - MULTIPLE SCLEROSIS RELAPSE [None]
  - BLINDNESS [None]
  - MEMORY IMPAIRMENT [None]
  - ABASIA [None]
  - URINARY TRACT INFECTION [None]
